FAERS Safety Report 7434399-9 (Version None)
Quarter: 2011Q2

REPORT INFORMATION
  Report Type: 
  Country: None (occurrence: None)
  Receive Date: 20110425
  Receipt Date: 20110418
  Transmission Date: 20111010
  Serious: Yes (Death, Other)
  Sender: FDA-Public Use
  Company Number: PHHO2010NL12400

PATIENT
  Sex: Male

DRUGS (1)
  1. PIMECROLIMUS [Suspect]
     Indication: DERMATITIS ATOPIC
     Dosage: DOUBLE BLIND
     Route: 061
     Dates: start: 19980625, end: 19990629

REACTIONS (1)
  - MYCOSIS FUNGOIDES [None]
